FAERS Safety Report 7515947-7 (Version None)
Quarter: 2011Q2

REPORT INFORMATION
  Report Type: 
  Country: None (occurrence: None)
  Receive Date: 20110601
  Receipt Date: 20110505
  Transmission Date: 20111010
  Serious: No
  Sender: FDA-Public Use
  Company Number: US-B.I. PHARMACEUTICALS,INC./RIDGEFIELD-2010-BP-11532BP

PATIENT
  Age: 81 Year
  Sex: Male

DRUGS (7)
  1. FOSAMAX [Concomitant]
     Indication: OSTEOPOROSIS
     Route: 048
  2. HYTRIN [Concomitant]
     Indication: HYPERTENSION
  3. SPIRIVA [Suspect]
     Indication: CHRONIC OBSTRUCTIVE PULMONARY DISEASE
     Dosage: 18 MCG
     Route: 055
     Dates: start: 20090101
  4. ZOCOR [Concomitant]
     Indication: BLOOD CHOLESTEROL INCREASED
  5. ASPIRIN [Concomitant]
     Indication: PROPHYLAXIS
     Dosage: 81 MG
     Route: 048
  6. FOSAMAX [Concomitant]
     Indication: BENIGN PROSTATIC HYPERPLASIA
  7. UNKNOWN MEDICATION [Concomitant]
     Indication: OSTEOPOROSIS

REACTIONS (2)
  - DRUG INEFFECTIVE [None]
  - DYSPNOEA EXERTIONAL [None]
